FAERS Safety Report 8080238-5 (Version None)
Quarter: 2012Q1

REPORT INFORMATION
  Report Type: 
  Country: None (occurrence: None)
  Receive Date: 20120130
  Receipt Date: 20120117
  Transmission Date: 20120608
  Serious: Yes (Other)
  Sender: FDA-Public Use
  Company Number: FR-ELI_LILLY_AND_COMPANY-FR201110003548

PATIENT
  Age: 57 Year
  Sex: Female
  Weight: 55 kg

DRUGS (3)
  1. PROZAC [Suspect]
     Indication: DEPRESSION
     Dosage: 20 MG, QD
     Route: 048
     Dates: start: 20101201, end: 20111017
  2. DULOXETIME HYDROCHLORIDE [Suspect]
     Indication: DEPRESSION
     Dosage: UNK
     Route: 048
     Dates: start: 20110101
  3. RISPERDAL [Concomitant]
     Indication: ANXIETY
     Dosage: 1 MG, QD
     Route: 048
     Dates: start: 20100901

REACTIONS (4)
  - GINGIVAL BLEEDING [None]
  - ECCHYMOSIS [None]
  - THROMBOCYTOPENIA [None]
  - HAEMORRHOIDAL HAEMORRHAGE [None]
